FAERS Safety Report 5989742-4 (Version None)
Quarter: 2008Q4

REPORT INFORMATION
  Report Type: 
  Country: None (occurrence: None)
  Receive Date: 20081209
  Receipt Date: 20081124
  Transmission Date: 20090506
  Serious: Yes (Other)
  Sender: FDA-Public Use
  Company Number: 2008S1021016

PATIENT
  Age: 45 Year
  Sex: Male

DRUGS (5)
  1. CLOZAPINE [Suspect]
     Indication: SCHIZOPHRENIA, PARANOID TYPE
     Dosage: 400 MG;NULL_1_DAY;
  2. DIPHENHYDRAMINE HCL [Suspect]
     Indication: INSOMNIA
     Dosage: ORAL
     Route: 048
  3. RISPERIDONE [Concomitant]
  4. GABAPENTIN [Concomitant]
  5. CLONAZEPAM [Suspect]
     Dosage: 4 MG;DAILY

REACTIONS (4)
  - INCORRECT DOSE ADMINISTERED [None]
  - LEUKOPENIA [None]
  - NEUTROPENIA [None]
  - WITHDRAWAL SYNDROME [None]
